FAERS Safety Report 9734456 (Version 1)
Quarter: 2013Q4

REPORT INFORMATION
  Report Type: Spontaneous
  Country: US (occurrence: US)
  Receive Date: 20131206
  Receipt Date: 20131206
  Transmission Date: 20140711
  Serious: Yes (Other)
  Sender: FDA-Public Use
  Company Number: US-ASTRAZENECA-2013SE88051

PATIENT
  Sex: Male

DRUGS (3)
  1. NEXIUM [Suspect]
     Indication: GASTROOESOPHAGEAL REFLUX DISEASE
     Dosage: TWICE A DAY
     Route: 048
     Dates: start: 2002
  2. NEXIUM [Suspect]
     Indication: BARRETT^S OESOPHAGUS
     Dosage: TWICE A DAY
     Route: 048
     Dates: start: 2002
  3. VITAMIN D [Concomitant]
     Dosage: 50000 UNITS WEEKLY AND 200000 UNITS DAILY

REACTIONS (8)
  - Oesophageal disorder [Unknown]
  - Gastric disorder [Unknown]
  - Arthropathy [Unknown]
  - Musculoskeletal discomfort [Unknown]
  - Calcium deficiency [Unknown]
  - Vitamin D deficiency [Unknown]
  - Bone pain [Unknown]
  - Tooth disorder [Unknown]
